FAERS Safety Report 6248382-2 (Version None)
Quarter: 2009Q2

REPORT INFORMATION
  Report Type: 
  Country: None (occurrence: None)
  Receive Date: 20090629
  Receipt Date: 20090623
  Transmission Date: 20091009
  Serious: Yes (Death, Hospitalization, Other)
  Sender: FDA-Public Use
  Company Number: PHHY2009JP20537

PATIENT
  Age: 5 Year
  Sex: Female

DRUGS (2)
  1. SANDIMMUNE [Suspect]
     Indication: CORD BLOOD TRANSPLANT THERAPY
     Dosage: UNK
     Dates: start: 20040201, end: 20040201
  2. TACROLIMUS [Suspect]
     Indication: CORD BLOOD TRANSPLANT THERAPY

REACTIONS (14)
  - ABULIA [None]
  - ANOREXIA [None]
  - CEREBRAL ATROPHY [None]
  - EPILEPSY [None]
  - HYPERTENSION [None]
  - LOSS OF CONSCIOUSNESS [None]
  - MENTAL STATUS CHANGES [None]
  - MOOD SWINGS [None]
  - MUTISM [None]
  - RENAL IMPAIRMENT [None]
  - REVERSIBLE POSTERIOR LEUKOENCEPHALOPATHY SYNDROME [None]
  - SUDDEN DEATH [None]
  - VOMITING [None]
  - WALKING AID USER [None]
